FAERS Safety Report 25019200 (Version 2)
Quarter: 2025Q1

REPORT INFORMATION
  Report Type: Spontaneous
  Country: US (occurrence: US)
  Receive Date: 20250227
  Receipt Date: 20250306
  Transmission Date: 20250408
  Serious: No
  Sender: BIOGEN
  Company Number: US-BIOGENIDEC-2015BI123551

PATIENT
  Sex: Female

DRUGS (16)
  1. PLEGRIDY [Suspect]
     Active Substance: PEGINTERFERON BETA-1A
     Indication: Multiple sclerosis
     Route: 050
     Dates: start: 20150901
  2. PLEGRIDY [Suspect]
     Active Substance: PEGINTERFERON BETA-1A
     Route: 050
  3. ADVIL [Concomitant]
     Active Substance: IBUPROFEN
     Route: 050
  4. BUMEX [Concomitant]
     Active Substance: BUMETANIDE
     Route: 050
  5. MACRODANTIN [Concomitant]
     Active Substance: NITROFURANTOIN
     Route: 050
  6. OCREVUS [Concomitant]
     Active Substance: OCRELIZUMAB
     Route: 050
  7. TYLENOL [Concomitant]
     Active Substance: ACETAMINOPHEN
     Route: 050
  8. VITAMIN B12 [Concomitant]
     Active Substance: CYANOCOBALAMIN
     Route: 050
  9. MENAQUINONE 6 [Concomitant]
     Active Substance: MENAQUINONE 6
     Route: 050
  10. EZETIMIBE [Concomitant]
     Active Substance: EZETIMIBE
     Route: 050
  11. SIMVASTATIN [Concomitant]
     Active Substance: SIMVASTATIN
     Route: 050
  12. GINGER [Concomitant]
     Active Substance: GINGER
     Route: 050
  13. LIOTHYRONINE [Concomitant]
     Active Substance: LIOTHYRONINE
     Route: 050
  14. MAGNESIUM [Concomitant]
     Active Substance: MAGNESIUM
     Route: 050
  15. NAPROXEN [Concomitant]
     Active Substance: NAPROXEN
     Route: 050
  16. HERBALS\TURMERIC [Concomitant]
     Active Substance: HERBALS\TURMERIC
     Route: 050

REACTIONS (10)
  - Injection site infection [Not Recovered/Not Resolved]
  - Rash papular [Not Recovered/Not Resolved]
  - Erythema [Not Recovered/Not Resolved]
  - Drug intolerance [Unknown]
  - Contusion [Unknown]
  - Headache [Recovered/Resolved]
  - Influenza like illness [Recovered/Resolved]
  - Injection site reaction [Not Recovered/Not Resolved]
  - Injection site rash [Unknown]
  - Pruritus [Unknown]

NARRATIVE: CASE EVENT DATE: 20150101
